FAERS Safety Report 9853238 (Version 1)
Quarter: 2014Q1

REPORT INFORMATION
  Report Type: Spontaneous
  Country: JP (occurrence: JP)
  Receive Date: 20140129
  Receipt Date: 20140129
  Transmission Date: 20141002
  Serious: No
  Sender: FDA-Public Use
  Company Number: JP-SUCAMPO PHARMA AMERICAS, INC-SPI201400047

PATIENT
  Age: 67 Year
  Sex: Female

DRUGS (2)
  1. AMITIZA [Suspect]
     Indication: CONSTIPATION
     Dosage: 24 MCG, BID
     Route: 048
  2. GANATON [Suspect]
     Dosage: 50 MG, BID
     Route: 048

REACTIONS (3)
  - Dyspnoea [Recovered/Resolved]
  - Chest pain [Recovered/Resolved]
  - Pruritus generalised [Recovered/Resolved]
